FAERS Safety Report 4431661-9 (Version None)
Quarter: 2004Q3

REPORT INFORMATION
  Report Type: 
  Country: None (occurrence: None)
  Receive Date: 20040721
  Receipt Date: 20040330
  Transmission Date: 20050211
  Serious: Yes (Other)
  Sender: FDA-Public Use
  Company Number: 2004023605

PATIENT
  Age: 58 Year
  Sex: Female
  Weight: 53.5244 kg

DRUGS (12)
  1. RELPAX [Suspect]
     Indication: MIGRAINE
     Dosage: 40 MG PRN, ORAL
     Route: 048
     Dates: start: 20040329
  2. BENAZEPRIL HCL [Concomitant]
  3. VERAPAMIL [Concomitant]
  4. MESALAZINE (MESALAZINE) [Concomitant]
  5. ROFECOXIB [Concomitant]
  6. ANOVLAR ((ETHINYLESTRADIOL, NORETHISTERONE ACETATE) [Concomitant]
  7. CIMETIDINE [Concomitant]
  8. LORAZEPAM [Concomitant]
  9. CALCIUM (CALCIUM) [Concomitant]
  10. BISMUTH SUBSALICYLATE IN OIL INJ [Concomitant]
  11. VITAMINS (VITAMINS) [Concomitant]
  12. ZOLPIDEM TARTRATE [Concomitant]

REACTIONS (2)
  - ABDOMINAL DISTENSION [None]
  - DIARRHOEA [None]
